FAERS Safety Report 7187198-X (Version None)
Quarter: 2010Q4

REPORT INFORMATION
  Report Type: 
  Country: None (occurrence: None)
  Receive Date: 20101222
  Receipt Date: 20101214
  Transmission Date: 20110411
  Serious: Yes (Other)
  Sender: FDA-Public Use
  Company Number: US-ABBOTT-10P-163-0691680-00

PATIENT
  Sex: Female
  Weight: 59.02 kg

DRUGS (9)
  1. NIASPAN [Suspect]
     Indication: BLOOD TRIGLYCERIDES INCREASED
     Dates: start: 20081201, end: 20100801
  2. NIASPAN [Suspect]
     Dates: start: 20101201
  3. CENTRUM MVI [Concomitant]
     Indication: PRODUCT USED FOR UNKNOWN INDICATION
  4. VIT D [Concomitant]
     Indication: PRODUCT USED FOR UNKNOWN INDICATION
  5. WILD YAM [Concomitant]
     Indication: PRODUCT USED FOR UNKNOWN INDICATION
  6. SUPER D3 [Concomitant]
     Indication: PRODUCT USED FOR UNKNOWN INDICATION
  7. CALCIUM [Concomitant]
     Indication: PRODUCT USED FOR UNKNOWN INDICATION
  8. LACTAID [Concomitant]
     Indication: PRODUCT USED FOR UNKNOWN INDICATION
  9. MELATONIN [Concomitant]
     Indication: PRODUCT USED FOR UNKNOWN INDICATION

REACTIONS (4)
  - BREAST CANCER [None]
  - BURNING SENSATION [None]
  - FLUSHING [None]
  - PRURITUS [None]
